FAERS Safety Report 19716373 (Version 7)
Quarter: 2021Q4

REPORT INFORMATION
  Report Type: Report from Study
  Country: US (occurrence: US)
  Receive Date: 20210819
  Receipt Date: 20211024
  Transmission Date: 20220303
  Serious: Yes (Other)
  Sender: FDA-Public Use
  Company Number: US-BEH-2021134591

PATIENT
  Age: 71 Year
  Sex: Female
  Weight: 75.74 kg

DRUGS (4)
  1. HIZENTRA [Suspect]
     Active Substance: HUMAN IMMUNOGLOBULIN G
     Indication: Chronic inflammatory demyelinating polyradiculoneuropathy
     Dosage: 16 GRAM, QW
     Route: 058
     Dates: start: 20210730
  2. HIZENTRA [Suspect]
     Active Substance: HUMAN IMMUNOGLOBULIN G
     Dosage: 2 GRAM, QW
     Route: 058
     Dates: start: 20210808
  3. HIZENTRA [Suspect]
     Active Substance: HUMAN IMMUNOGLOBULIN G
     Dosage: 0.2 G/KG, QW
     Route: 058
  4. HIZENTRA [Suspect]
     Active Substance: HUMAN IMMUNOGLOBULIN G
     Dosage: 2 GRAM, QW
     Route: 058
     Dates: start: 20210820, end: 20210821

REACTIONS (43)
  - Infusion site swelling [Recovering/Resolving]
  - Infusion site pruritus [Recovered/Resolved]
  - Pain [Recovered/Resolved]
  - Energy increased [Recovering/Resolving]
  - Somnolence [Recovered/Resolved]
  - Dysuria [Recovering/Resolving]
  - Fatigue [Recovered/Resolved]
  - Influenza like illness [Recovered/Resolved]
  - Dyspnoea [Recovered/Resolved]
  - Throat irritation [Not Recovered/Not Resolved]
  - Rhinorrhoea [Recovering/Resolving]
  - Chills [Recovering/Resolving]
  - Fatigue [Recovering/Resolving]
  - Diarrhoea [Recovering/Resolving]
  - Complex regional pain syndrome [Recovering/Resolving]
  - Abdominal discomfort [Recovering/Resolving]
  - Neck pain [Recovered/Resolved]
  - Headache [Recovered/Resolved]
  - Paraesthesia [Recovering/Resolving]
  - Pyrexia [Unknown]
  - Limb discomfort [Recovering/Resolving]
  - Headache [Recovered/Resolved]
  - Complex regional pain syndrome [Unknown]
  - Meningitis aseptic [Unknown]
  - Oropharyngeal pain [Unknown]
  - Cough [Unknown]
  - Pain [Recovered/Resolved]
  - Infusion site erythema [Not Recovered/Not Resolved]
  - Infusion site pain [Not Recovered/Not Resolved]
  - Infusion site mass [Not Recovered/Not Resolved]
  - Hypoaesthesia [Not Recovered/Not Resolved]
  - Headache [Not Recovered/Not Resolved]
  - Pain [Unknown]
  - Balance disorder [Recovering/Resolving]
  - Irritability [Not Recovered/Not Resolved]
  - Anger [Not Recovered/Not Resolved]
  - Fibromyalgia [Unknown]
  - Fluid retention [Unknown]
  - Hypoaesthesia [Unknown]
  - Infusion site pain [Unknown]
  - Eyelid ptosis [Not Recovered/Not Resolved]
  - Drug ineffective [Not Recovered/Not Resolved]
  - Weight fluctuation [Not Recovered/Not Resolved]

NARRATIVE: CASE EVENT DATE: 20210730
